FAERS Safety Report 24047470 (Version 1)
Quarter: 2024Q3

REPORT INFORMATION
  Report Type: Spontaneous
  Country: US (occurrence: US)
  Receive Date: 20240703
  Receipt Date: 20240703
  Transmission Date: 20241016
  Serious: Yes (Other)
  Sender: UROGEN PHARMA
  Company Number: US-UROGEN PHARMA LTD.-2024-UGN-000059

PATIENT

DRUGS (6)
  1. JELMYTO [Suspect]
     Active Substance: MITOMYCIN
     Indication: Transitional cell cancer of the renal pelvis and ureter
     Dosage: 15 MILLILITER, ONCE A WEEK (INSTILLATION)
     Dates: start: 20240214, end: 20240214
  2. JELMYTO [Suspect]
     Active Substance: MITOMYCIN
     Dosage: 15 MILLILITER, ONCE A WEEK (INSTILLATION)
     Dates: start: 20240221, end: 20240221
  3. JELMYTO [Suspect]
     Active Substance: MITOMYCIN
     Dosage: 15 MILLILITER, ONCE A WEEK (INSTILLATION)
     Dates: start: 20240228, end: 20240228
  4. JELMYTO [Suspect]
     Active Substance: MITOMYCIN
     Dosage: 15 MILLILITER, ONCE A WEEK (INSTILLATION)
     Dates: start: 20240306, end: 20240306
  5. JELMYTO [Suspect]
     Active Substance: MITOMYCIN
     Dosage: 15 MILLILITER, ONCE A WEEK (INSTILLATION)
     Dates: start: 20240316, end: 20240316
  6. JELMYTO [Suspect]
     Active Substance: MITOMYCIN
     Dosage: 15 MILLILITER, ONCE A WEEK (INSTILLATION)
     Dates: start: 20240320, end: 20240320

REACTIONS (1)
  - Hydronephrosis [Unknown]

NARRATIVE: CASE EVENT DATE: 20240101
